FAERS Safety Report 5063461-3 (Version None)
Quarter: 2006Q3

REPORT INFORMATION
  Report Type: 
  Country: None (occurrence: None)
  Receive Date: 20060727
  Receipt Date: 20060724
  Transmission Date: 20061208
  Serious: Yes (Death, Hospitalization)
  Sender: FDA-Public Use
  Company Number: MX-GLAXOSMITHKLINE-A0613615A

PATIENT
  Age: 15 Year
  Sex: Male

DRUGS (2)
  1. AROPAX [Suspect]
     Indication: DEPRESSION
     Route: 048
     Dates: end: 20060627
  2. TRILEPTAL [Concomitant]
     Dosage: 300MG PER DAY
     Dates: start: 20060225, end: 20060627

REACTIONS (1)
  - DEATH [None]
